FAERS Safety Report 23275978 (Version 2)
Quarter: 2024Q1

REPORT INFORMATION
  Report Type: Spontaneous
  Country: JP (occurrence: JP)
  Receive Date: 20231208
  Receipt Date: 20240215
  Transmission Date: 20240410
  Serious: Yes (Other)
  Sender: FDA-Public Use
  Company Number: JP-ONO-2023JP025778

PATIENT
  Age: 7 Decade
  Sex: Female

DRUGS (14)
  1. PARSABIV [Suspect]
     Active Substance: ETELCALCETIDE HYDROCHLORIDE
     Indication: Hyperparathyroidism secondary
     Dosage: 5 MILLIGRAM, Q56H
     Route: 010
     Dates: start: 20170501, end: 20191106
  2. DARBEPOETIN ALFA [Concomitant]
     Active Substance: DARBEPOETIN ALFA
     Dosage: 40 MICROGRAM
     Route: 065
  3. LEVOCARNITINE [Concomitant]
     Active Substance: LEVOCARNITINE
     Dosage: 1000 MILLIGRAM
     Route: 042
  4. OXAROL [Concomitant]
     Active Substance: MAXACALCITOL
     Dosage: 2.5 MICROGRAM
     Route: 065
  5. CALTAN [Concomitant]
     Active Substance: CALCIUM CARBONATE
     Dosage: 500 MILLIGRAM, Q12H
     Route: 048
  6. ADALAT CC [Concomitant]
     Active Substance: NIFEDIPINE
     Dosage: 10 MILLIGRAM, Q12H
     Route: 048
  7. ADALAT CC [Concomitant]
     Active Substance: NIFEDIPINE
     Dosage: 10 MILLIGRAM, Q8H
  8. FERRIC CITRATE ANHYDROUS [Concomitant]
     Active Substance: FERRIC CITRATE ANHYDROUS
     Dosage: 250 MILLIGRAM, QD
     Route: 048
  9. AZILSARTAN KAMEDOXOMIL [Concomitant]
     Active Substance: AZILSARTAN KAMEDOXOMIL
     Dosage: 10 MILLIGRAM, QD
     Route: 048
  10. AZILSARTAN KAMEDOXOMIL [Concomitant]
     Active Substance: AZILSARTAN KAMEDOXOMIL
     Dosage: 20 MILLIGRAM, QD
  11. AZILSARTAN KAMEDOXOMIL [Concomitant]
     Active Substance: AZILSARTAN KAMEDOXOMIL
     Dosage: 10 MILLIGRAM, QD
  12. CARDENALIN [Concomitant]
     Active Substance: DOXAZOSIN MESYLATE
     Dosage: 1.5 MILLIGRAM, QD  (1 IN THE NOON; 0.5 BEFORE SLEEP)
     Route: 048
  13. CARDENALIN [Concomitant]
     Active Substance: DOXAZOSIN MESYLATE
     Dosage: 0.5 MILLIGRAM, QD (ON OFF-DIALYSIS DAYS)
  14. CARDENALIN [Concomitant]
     Active Substance: DOXAZOSIN MESYLATE
     Dosage: 2.5 MILLIGRAM, QD (0.5-1-1 AFTER EACH MEAL)

REACTIONS (7)
  - Parosmia [Recovered/Resolved]
  - Vascular device infection [Unknown]
  - Mechanical ileus [Unknown]
  - Palpitations [Unknown]
  - Hyperuricaemia [Unknown]
  - Constipation [Unknown]
  - Pruritus [Unknown]

NARRATIVE: CASE EVENT DATE: 20181121
